FAERS Safety Report 7549977-6 (Version None)
Quarter: 2011Q2

REPORT INFORMATION
  Report Type: 
  Country: None (occurrence: None)
  Receive Date: 20110615
  Receipt Date: 20110531
  Transmission Date: 20111010
  Serious: Yes (Other)
  Sender: FDA-Public Use
  Company Number: CO-GENENTECH-319948

PATIENT
  Sex: Female

DRUGS (3)
  1. LUCENTIS [Suspect]
     Dosage: 0.5 MG, 1/MONTH
     Route: 031
     Dates: start: 20100818
  2. LUCENTIS [Suspect]
     Indication: MACULAR DEGENERATION
     Dosage: 0.5 MG, 1/MONTH
     Route: 031
     Dates: start: 20100623
  3. LUCENTIS [Suspect]
     Dosage: 0.5 MG, 1/MONTH
     Route: 031
     Dates: start: 20100721

REACTIONS (1)
  - RASH GENERALISED [None]
